FAERS Safety Report 25984638 (Version 2)
Quarter: 2025Q4

REPORT INFORMATION
  Report Type: Spontaneous
  Country: US (occurrence: US)
  Receive Date: 20251031
  Receipt Date: 20251104
  Transmission Date: 20260117
  Serious: No
  Sender: ABBVIE
  Company Number: US-ABBVIE-6525596

PATIENT

DRUGS (2)
  1. KYBELLA [Suspect]
     Active Substance: DEOXYCHOLIC ACID
     Indication: Product used for unknown indication
     Dosage: FORM STRENGTH: 4 MILLILITRE(S)
     Route: 023
     Dates: start: 20251014
  2. SILVADENE [Suspect]
     Active Substance: SILVER SULFADIAZINE
     Indication: Product used for unknown indication
     Dosage: 1%
     Route: 065

REACTIONS (6)
  - Off label use [Not Recovered/Not Resolved]
  - Injection site discolouration [Unknown]
  - Lipoma [Unknown]
  - Wound [Unknown]
  - Pyrexia [Unknown]
  - Wound complication [Unknown]

NARRATIVE: CASE EVENT DATE: 20251014
